FAERS Safety Report 8121650-5 (Version None)
Quarter: 2012Q1

REPORT INFORMATION
  Report Type: 
  Country: None (occurrence: None)
  Receive Date: 20120208
  Receipt Date: 20120208
  Transmission Date: 20120608
  Serious: No
  Sender: FDA-Public Use
  Company Number: None

PATIENT
  Age: 57 Year
  Sex: Male
  Weight: 97.522 kg

DRUGS (3)
  1. PROPECIA [Suspect]
     Indication: PROSTATOMEGALY
     Dosage: 1.0 MG
     Route: 048
     Dates: start: 19960401, end: 20111207
  2. PROSCAR [Concomitant]
     Indication: PROSTATOMEGALY
     Dosage: 5 MG
     Route: 048
     Dates: start: 19930401, end: 19960601
  3. PROSCAR [Concomitant]
     Indication: ALOPECIA
     Dosage: 5 MG
     Route: 048
     Dates: start: 19930401, end: 19960601

REACTIONS (1)
  - PROSTATOMEGALY [None]
